FAERS Safety Report 12393710 (Version 2)
Quarter: 2016Q4

REPORT INFORMATION
  Report Type: Report from Study
  Country: JP (occurrence: JP)
  Receive Date: 20160523
  Receipt Date: 20161109
  Transmission Date: 20170207
  Serious: Yes (Death)
  Sender: FDA-Public Use
  Company Number: JP-VIFOR (INTERNATIONAL) INC.-VIT-2016-02451

PATIENT
  Age: 67 Year
  Sex: Male

DRUGS (11)
  1. VELPHORO [Suspect]
     Active Substance: FERRIC OXYHYDROXIDE
     Route: 048
     Dates: start: 20160420, end: 20160513
  2. OLMETEC [Concomitant]
     Active Substance: OLMESARTAN MEDOXOMIL
     Route: 048
     Dates: end: 20160513
  3. EPOETIN ALFA [Concomitant]
     Active Substance: ERYTHROPOIETIN
     Route: 042
     Dates: end: 20160513
  4. FESIN [Concomitant]
     Active Substance: IRON SUCROSE
     Route: 042
     Dates: end: 20160513
  5. VELPHORO [Suspect]
     Active Substance: FERRIC OXYHYDROXIDE
     Indication: HYPERPHOSPHATAEMIA
     Route: 048
     Dates: start: 20160331, end: 20160419
  6. FEBURIC [Concomitant]
     Active Substance: FEBUXOSTAT
     Route: 048
     Dates: end: 20160513
  7. ARTIST [Concomitant]
     Active Substance: CARVEDILOL
     Route: 048
     Dates: end: 20160513
  8. REGPARA [Concomitant]
     Active Substance: CINACALCET HYDROCHLORIDE
     Route: 048
     Dates: end: 20160513
  9. ADALAT [Concomitant]
     Active Substance: NIFEDIPINE
     Route: 048
     Dates: end: 20160513
  10. GASTER [Concomitant]
     Active Substance: FAMOTIDINE
     Route: 048
     Dates: end: 20160513
  11. MUCOSTA [Concomitant]
     Active Substance: REBAMIPIDE
     Route: 048

REACTIONS (1)
  - Cerebral haemorrhage [Fatal]

NARRATIVE: CASE EVENT DATE: 20160514
